FAERS Safety Report 4512632-0 (Version None)
Quarter: 2004Q4

REPORT INFORMATION
  Report Type: 
  Country: None (occurrence: None)
  Receive Date: 20041129
  Receipt Date: 20041119
  Transmission Date: 20050328
  Serious: Yes (Disabling)
  Sender: FDA-Public Use
  Company Number: US-MERCK-0411USA03398

PATIENT
  Age: 21 Year
  Sex: Female

DRUGS (1)
  1. VIOXX [Suspect]
     Indication: ABDOMINAL PAIN
     Route: 048
     Dates: start: 20030801

REACTIONS (2)
  - ABDOMINAL PAIN [None]
  - MENSTRUATION IRREGULAR [None]
